FAERS Safety Report 16906773 (Version 1)
Quarter: 2019Q4

REPORT INFORMATION
  Report Type: Spontaneous
  Country: IT (occurrence: IT)
  Receive Date: 20191011
  Receipt Date: 20191011
  Transmission Date: 20200122
  Serious: Yes (Life-Threatening, Hospitalization, Other)
  Sender: FDA-Public Use
  Company Number: IT-B.I. PHARMACEUTICALS,INC./RIDGEFIELD-2019-BI-106924

PATIENT
  Age: 72 Year
  Sex: Male

DRUGS (1)
  1. PRADAXA [Suspect]
     Active Substance: DABIGATRAN ETEXILATE MESYLATE
     Indication: ATRIAL FIBRILLATION
     Route: 065

REACTIONS (7)
  - Rib fracture [Unknown]
  - Haematuria [Unknown]
  - Renal haematoma [Unknown]
  - Haemoglobin decreased [Unknown]
  - Splenic rupture [Unknown]
  - Perinephric collection [Unknown]
  - Road traffic accident [Unknown]
